FAERS Safety Report 19271103 (Version 1)
Quarter: 2021Q2

REPORT INFORMATION
  Report Type: Report from Study
  Country: KE (occurrence: KE)
  Receive Date: 20210518
  Receipt Date: 20210518
  Transmission Date: 20210717
  Serious: Yes (Hospitalization)
  Sender: FDA-Public Use
  Company Number: KE-SEATTLE GENETICS-2021SGN00607

PATIENT
  Sex: Female

DRUGS (2)
  1. BRENTUXIMAB VEDOTIN [Suspect]
     Active Substance: BRENTUXIMAB VEDOTIN
     Indication: HODGKIN^S DISEASE
     Dosage: 104 MILLIGRAM, 3/WEEK
     Route: 042
     Dates: start: 20210119
  2. BRENTUXIMAB VEDOTIN [Suspect]
     Active Substance: BRENTUXIMAB VEDOTIN
     Dosage: 94.4 MILLIGRAM, 3/WEEK
     Route: 042

REACTIONS (6)
  - Acne [Unknown]
  - Asthenia [Unknown]
  - Rash [Unknown]
  - Wound [Unknown]
  - Skin exfoliation [Unknown]
  - Pruritus [Unknown]
